FAERS Safety Report 18111896 (Version 1)
Quarter: 2020Q3

REPORT INFORMATION
  Report Type: Spontaneous
  Country: CN (occurrence: CN)
  Receive Date: 20200805
  Receipt Date: 20200805
  Transmission Date: 20201103
  Serious: Yes (Hospitalization, Other)
  Sender: FDA-Public Use
  Company Number: CN-ALVOGEN-2020-ALVOGEN-113756

PATIENT
  Age: 55 Year
  Sex: Male

DRUGS (2)
  1. VORICONAZOLE. [Suspect]
     Active Substance: VORICONAZOLE
     Indication: PENICILLIUM INFECTION
     Dosage: ON DAY 23
     Route: 042
     Dates: start: 2016
  2. VORICONAZOLE. [Suspect]
     Active Substance: VORICONAZOLE
     Indication: PENICILLIUM INFECTION
     Dosage: ON DAY 22 OF ADMISSION
     Route: 042
     Dates: start: 2016

REACTIONS (2)
  - Acute respiratory distress syndrome [Recovered/Resolved]
  - Inflammation [Recovered/Resolved]

NARRATIVE: CASE EVENT DATE: 2016
